FAERS Safety Report 9381255 (Version 1)
Quarter: 2013Q3

REPORT INFORMATION
  Report Type: Spontaneous
  Country: US (occurrence: US)
  Receive Date: 20130703
  Receipt Date: 20130703
  Transmission Date: 20140515
  Serious: No
  Sender: FDA-Public Use
  Company Number: US-PFIZER INC-2013194308

PATIENT
  Age: 35 Year
  Sex: Female
  Weight: 68.03 kg

DRUGS (1)
  1. PROTONIX [Suspect]
     Dosage: UNK
     Dates: start: 2006, end: 2010

REACTIONS (1)
  - Vomiting [Not Recovered/Not Resolved]
